FAERS Safety Report 11405026 (Version 2)
Quarter: 2015Q3

REPORT INFORMATION
  Report Type: Spontaneous
  Country: GB (occurrence: GB)
  Receive Date: 20150821
  Receipt Date: 20150824
  Transmission Date: 20151125
  Serious: Yes (Hospitalization)
  Sender: FDA-Public Use
  Company Number: GB-TEVA-559553ACC

PATIENT
  Age: 95 Year
  Sex: Female

DRUGS (7)
  1. TOLTERODINE [Suspect]
     Active Substance: TOLTERODINE
     Indication: URINARY INCONTINENCE
     Dosage: 4 MILLIGRAM DAILY; EVERY MORNING
  2. CALFOVIT D3 [Concomitant]
     Dosage: 1 DOSAGE FORMS DAILY; EVERY MORNING, SACHETS; ORAL POWDER
     Route: 048
  3. FELODIPINE. [Concomitant]
     Active Substance: FELODIPINE
     Dosage: 5 MILLIGRAM DAILY; EVERY MORNING; MODIFIED-RELEASE TABLET
  4. COCODAMOL [Suspect]
     Active Substance: ACETAMINOPHEN\CODEINE PHOSPHATE
     Dosage: 1-2 FOUR TIMES A DAY
  5. QUININE BISULPHATE [Concomitant]
     Dosage: 300 MILLIGRAM DAILY; AT NIGHT
  6. ALENDRONIC ACID [Concomitant]
     Active Substance: ALENDRONIC ACID
  7. SIMVASTATIN. [Concomitant]
     Active Substance: SIMVASTATIN
     Dosage: 40 MILLIGRAM DAILY; AT NIGHT

REACTIONS (7)
  - Speech disorder [Unknown]
  - Urinary retention [Unknown]
  - Confusional state [Unknown]
  - Agitation [Unknown]
  - Pain [Unknown]
  - Hallucination, visual [Unknown]
  - Delirium [Unknown]
